FAERS Safety Report 9401366 (Version 1)
Quarter: 2013Q3

REPORT INFORMATION
  Report Type: Spontaneous
  Country: CN (occurrence: CN)
  Receive Date: 20130715
  Receipt Date: 20130715
  Transmission Date: 20140515
  Serious: Yes (Other)
  Sender: FDA-Public Use
  Company Number: CN-BAXTER-2013BAX026721

PATIENT
  Age: 77 Year
  Sex: Male
  Weight: 62 kg

DRUGS (4)
  1. 5% GLUCOSE INJECTION [Suspect]
     Indication: MEDICATION DILUTION
     Route: 041
     Dates: start: 20121115, end: 20121116
  2. 5% GLUCOSE INJECTION [Suspect]
     Indication: ELECTROLYTE SUBSTITUTION THERAPY
     Route: 041
     Dates: start: 20121115, end: 20121116
  3. VITAMIN C [Suspect]
     Indication: VITAMIN SUPPLEMENTATION
     Route: 041
     Dates: start: 20121115, end: 20121116
  4. VITAMIN B6 [Suspect]
     Indication: VITAMIN SUPPLEMENTATION
     Dates: start: 20121115, end: 20121116

REACTIONS (3)
  - Chills [Recovering/Resolving]
  - Dyspnoea [Recovering/Resolving]
  - Temperature intolerance [Recovering/Resolving]
